FAERS Safety Report 7083604-X (Version None)
Quarter: 2010Q4

REPORT INFORMATION
  Report Type: 
  Country: None (occurrence: None)
  Receive Date: 20101103
  Receipt Date: 20101103
  Transmission Date: 20110411
  Serious: Yes (Hospitalization)
  Sender: FDA-Public Use
  Company Number: None

PATIENT
  Age: 86 Year
  Sex: Male
  Weight: 63.5036 kg

DRUGS (1)
  1. TOLVAPTAN 15 MG [Suspect]
     Indication: HYPONATRAEMIA
     Dosage: 15 MG ONCE PO
     Route: 048
     Dates: start: 20100801, end: 20100802

REACTIONS (1)
  - METABOLIC ENCEPHALOPATHY [None]
